FAERS Safety Report 25990421 (Version 2)
Quarter: 2025Q4

REPORT INFORMATION
  Report Type: Spontaneous
  Country: AR (occurrence: AR)
  Receive Date: 20251103
  Receipt Date: 20251111
  Transmission Date: 20260117
  Serious: Yes (Other)
  Sender: PFIZER
  Company Number: AR-PFIZER INC-202500215036

PATIENT
  Age: 67 Year
  Sex: Female

DRUGS (1)
  1. BRAFTOVI [Suspect]
     Active Substance: ENCORAFENIB
     Indication: Colorectal cancer metastatic
     Dosage: 300 MG, 1X/DAY
     Dates: start: 20250929

REACTIONS (2)
  - Patella fracture [Unknown]
  - Pain [Unknown]

NARRATIVE: CASE EVENT DATE: 20250901
